FAERS Safety Report 8047453-8 (Version None)
Quarter: 2012Q1

REPORT INFORMATION
  Report Type: 
  Country: None (occurrence: None)
  Receive Date: 20120116
  Receipt Date: 20120113
  Transmission Date: 20120608
  Serious: Yes (Other)
  Sender: FDA-Public Use
  Company Number: US-BAYER-2012-004433

PATIENT
  Age: 45 Year
  Sex: Female

DRUGS (5)
  1. BETASERON [Suspect]
     Indication: MULTIPLE SCLEROSIS
     Dosage: 8 MIU, QOD
     Route: 058
     Dates: start: 20110401, end: 20111206
  2. BETASERON [Suspect]
     Dosage: UNK
     Route: 058
     Dates: start: 20070614, end: 20080501
  3. BETASERON [Suspect]
     Dosage: UNK
     Route: 058
     Dates: start: 20100405, end: 20100617
  4. BETASERON [Suspect]
     Dosage: UNK
     Route: 058
     Dates: start: 20060908, end: 20061030
  5. BETASERON [Suspect]
     Dosage: UNK
     Route: 058
     Dates: start: 20100625, end: 20101230

REACTIONS (1)
  - WHITE BLOOD CELL COUNT ABNORMAL [None]
